FAERS Safety Report 24712432 (Version 1)
Quarter: 2024Q4

REPORT INFORMATION
  Report Type: Spontaneous
  Country: US (occurrence: US)
  Receive Date: 20241209
  Receipt Date: 20241209
  Transmission Date: 20250115
  Serious: Yes (Other)
  Sender: FRESENIUS KABI
  Company Number: US-FreseniusKabi-FK202418266

PATIENT
  Age: 82 Year
  Sex: Male

DRUGS (1)
  1. PROTAMINE SULFATE [Suspect]
     Active Substance: PROTAMINE SULFATE
     Indication: Product used for unknown indication
     Dosage: FORM OF ADMINISTRATION: INJECTION?FREQUENCY: ONCE
     Route: 042
     Dates: start: 20241203, end: 20241203

REACTIONS (1)
  - Hypotension [Recovering/Resolving]

NARRATIVE: CASE EVENT DATE: 20241203
